FAERS Safety Report 6895254-6 (Version None)
Quarter: 2010Q3

REPORT INFORMATION
  Report Type: 
  Country: None (occurrence: None)
  Receive Date: 20100728
  Receipt Date: 20100720
  Transmission Date: 20110219
  Serious: Yes (Other)
  Sender: FDA-Public Use
  Company Number: ENT 2010-0131

PATIENT
  Age: 60 Year
  Sex: Female

DRUGS (3)
  1. ENTACAPONE [Suspect]
     Indication: PARKINSON'S DISEASE
     Dosage: 800 MG,
  2. ROPINIROLE [Suspect]
     Indication: PARKINSON'S DISEASE
     Dosage: 8 MG DAILY
  3. LEVODOPA (LEVODOPA) [Suspect]
     Indication: PARKINSON'S DISEASE
     Dosage: 800 MG

REACTIONS (7)
  - CATATONIA [None]
  - DRUG EFFECT DECREASED [None]
  - DYSKINESIA [None]
  - DYSTONIA [None]
  - HAEMORRHAGE INTRACRANIAL [None]
  - HYPERTENSION [None]
  - ON AND OFF PHENOMENON [None]
